FAERS Safety Report 13150492 (Version 3)
Quarter: 2018Q1

REPORT INFORMATION
  Report Type: Report from Study
  Country: US (occurrence: US)
  Receive Date: 20170124
  Receipt Date: 20180105
  Transmission Date: 20180508
  Serious: No
  Sender: FDA-Public Use
  Company Number: US-AMGEN-USASL2016056408

PATIENT
  Age: 63 Year
  Sex: Female
  Weight: 74.83 kg

DRUGS (1)
  1. REPATHA [Suspect]
     Active Substance: EVOLOCUMAB
     Indication: HYPERLIPIDAEMIA
     Dosage: 140 MG, Q2WK
     Route: 058
     Dates: start: 201602, end: 201605

REACTIONS (5)
  - Drug hypersensitivity [Unknown]
  - Chapped lips [Not Recovered/Not Resolved]
  - Lip disorder [Not Recovered/Not Resolved]
  - Stomatitis [Unknown]
  - Dry mouth [Not Recovered/Not Resolved]

NARRATIVE: CASE EVENT DATE: 2016
